FAERS Safety Report 13303981 (Version 1)
Quarter: 2017Q1

REPORT INFORMATION
  Report Type: Spontaneous
  Country: US (occurrence: US)
  Receive Date: 20170307
  Receipt Date: 20170307
  Transmission Date: 20170428
  Serious: Yes (Other)
  Sender: FDA-Public Use
  Company Number: US-ELI_LILLY_AND_COMPANY-US201608004642

PATIENT

DRUGS (1)
  1. CYMBALTA [Suspect]
     Active Substance: DULOXETINE HYDROCHLORIDE
     Indication: PRODUCT USED FOR UNKNOWN INDICATION
     Dosage: UNK, UNKNOWN
     Route: 065
     Dates: start: 200703, end: 20150504

REACTIONS (39)
  - Pain [Unknown]
  - Paraesthesia [Unknown]
  - Dizziness [Unknown]
  - Tinnitus [Unknown]
  - Dysuria [Unknown]
  - Anxiety [Unknown]
  - Suicidal ideation [Unknown]
  - Blood pressure increased [Unknown]
  - Urinary tract infection [Unknown]
  - Arthralgia [Unknown]
  - Staphylococcal infection [Unknown]
  - Fatigue [Unknown]
  - Diarrhoea [Unknown]
  - Vertigo [Unknown]
  - Aggression [Unknown]
  - Blood cholesterol increased [Unknown]
  - Bruxism [Unknown]
  - Nausea [Unknown]
  - Irritability [Unknown]
  - Dysphoria [Unknown]
  - Agitation [Unknown]
  - Alopecia [Unknown]
  - Confusional state [Unknown]
  - Abnormal behaviour [Unknown]
  - Insomnia [Unknown]
  - Anger [Unknown]
  - Ventricular extrasystoles [Unknown]
  - Weight increased [Unknown]
  - Hyperhidrosis [Unknown]
  - Headache [Unknown]
  - Drug withdrawal syndrome [Unknown]
  - Sensory disturbance [Unknown]
  - Joint swelling [Unknown]
  - Lethargy [Unknown]
  - Affect lability [Unknown]
  - Panic attack [Unknown]
  - Tooth infection [Unknown]
  - Menopausal symptoms [Unknown]
  - Vomiting [Unknown]
